FAERS Safety Report 12974997 (Version 1)
Quarter: 2016Q4

REPORT INFORMATION
  Report Type: Spontaneous
  Country: DE (occurrence: DE)
  Receive Date: 20161125
  Receipt Date: 20161125
  Transmission Date: 20170207
  Serious: Yes (Other)
  Sender: FDA-Public Use
  Company Number: DE-PFIZER INC-2016541778

PATIENT
  Age: 53 Year
  Sex: Female
  Weight: 52 kg

DRUGS (2)
  1. PREGABALIN. [Suspect]
     Active Substance: PREGABALIN
     Indication: NEURALGIA
     Dosage: UP TO 275 MG
     Dates: start: 20150915
  2. PREGABALIN. [Suspect]
     Active Substance: PREGABALIN
     Dosage: 275 MG, UNK
     Dates: start: 201511

REACTIONS (13)
  - Joint swelling [Unknown]
  - Fatigue [Unknown]
  - Osteoarthritis [Unknown]
  - Tendon pain [Unknown]
  - Gait disturbance [Unknown]
  - Arthritis [Unknown]
  - Sensory disturbance [Unknown]
  - Influenza like illness [Unknown]
  - Limb discomfort [Unknown]
  - Muscular weakness [Unknown]
  - Pain in extremity [Unknown]
  - Meniscus injury [Unknown]
  - Arthralgia [Unknown]
